FAERS Safety Report 26190937 (Version 1)
Quarter: 2025Q4

REPORT INFORMATION
  Report Type: Spontaneous
  Country: US (occurrence: None)
  Receive Date: 20251222
  Receipt Date: 20251222
  Transmission Date: 20260118
  Serious: Yes (Hospitalization)
  Sender: FDA-CTU
  Company Number: None

PATIENT
  Sex: Female

DRUGS (5)
  1. MYCOPHENOLIC ACID [Suspect]
     Active Substance: MYCOPHENOLIC ACID
     Indication: Hepatic steatosis
     Route: 048
  2. METHENAM HIP TAB [Concomitant]
  3. NEXLETOL [Concomitant]
     Active Substance: BEMPEDOIC ACID
  4. PREDNISONE [Concomitant]
     Active Substance: PREDNISONE
  5. PREMARIN VAG CRE [Concomitant]

REACTIONS (2)
  - Hospitalisation [None]
  - Therapy interrupted [None]
